FAERS Safety Report 5326472-6 (Version None)
Quarter: 2007Q2

REPORT INFORMATION
  Report Type: 
  Country: None (occurrence: None)
  Receive Date: 20070516
  Receipt Date: 20070509
  Transmission Date: 20071010
  Serious: Yes (Hospitalization, Other)
  Sender: FDA-Public Use
  Company Number: US-ROCHE-494839

PATIENT
  Age: 69 Year
  Sex: Female

DRUGS (8)
  1. PEGASYS [Suspect]
     Route: 065
     Dates: end: 20070324
  2. RIBAVIRIN [Suspect]
     Route: 065
     Dates: end: 20070324
  3. DIOVAN [Concomitant]
  4. SYNTHROID [Concomitant]
  5. UNSPECIFIED DRUG [Concomitant]
     Dosage: FOR WHITE BLOOD CELLS
  6. ATENOLOL [Concomitant]
     Dates: end: 20070503
  7. DIURETIC [Concomitant]
  8. MILK THISTLE [Concomitant]

REACTIONS (11)
  - ANAEMIA [None]
  - BLOOD ELECTROLYTES ABNORMAL [None]
  - CARDIAC DISORDER [None]
  - DENTAL CARIES [None]
  - GINGIVAL BLEEDING [None]
  - MALAISE [None]
  - MOUTH HAEMORRHAGE [None]
  - PLATELET COUNT DECREASED [None]
  - RED BLOOD CELL COUNT DECREASED [None]
  - WEIGHT DECREASED [None]
  - WHITE BLOOD CELL COUNT DECREASED [None]
